FAERS Safety Report 8793659 (Version 1)
Quarter: 2012Q4

REPORT INFORMATION
  Report Type: Report from Study
  Country: PL (occurrence: PL)
  Receive Date: 20120917
  Receipt Date: 20120917
  Transmission Date: 20130627
  Serious: Yes (Other)
  Sender: FDA-Public Use
  Company Number: PL-GLAXOSMITHKLINE-Z0016968A

PATIENT
  Age: 54 Year
  Sex: Female
  Weight: 50 kg

DRUGS (2)
  1. LAPATINIB [Suspect]
     Indication: BREAST CANCER METASTATIC
     Dosage: 1250MG Per day
     Route: 048
     Dates: start: 20110607
  2. VINORELBINE [Suspect]
     Indication: BREAST CANCER METASTATIC
     Dosage: 20MGM2 Cyclic
     Route: 042
     Dates: start: 20110606

REACTIONS (1)
  - Neutropenia [Recovered/Resolved]
